FAERS Safety Report 8348409-8 (Version None)
Quarter: 2012Q2

REPORT INFORMATION
  Report Type: 
  Country: None (occurrence: None)
  Receive Date: 20120509
  Receipt Date: 20120425
  Transmission Date: 20120825
  Serious: Yes (Hospitalization, Other)
  Sender: FDA-Public Use
  Company Number: CHPA2012US004181

PATIENT
  Age: 25 Year
  Sex: Female

DRUGS (2)
  1. NICOTINE [Suspect]
     Indication: SMOKING CESSATION THERAPY
     Dosage: 7 MG, QD
     Route: 062
     Dates: start: 20120220, end: 20120220
  2. NICOTINE [Suspect]
     Dosage: 7 MG, QD
     Route: 062
     Dates: start: 20120215, end: 20120215

REACTIONS (6)
  - LACERATION [None]
  - MENTAL DISORDER [None]
  - SUICIDAL IDEATION [None]
  - HOMICIDAL IDEATION [None]
  - STRESS [None]
  - UNDERDOSE [None]
